FAERS Safety Report 24918561 (Version 1)
Quarter: 2025Q1

REPORT INFORMATION
  Report Type: Other
  Country: US (occurrence: US)
  Receive Date: 20250203
  Receipt Date: 20250203
  Transmission Date: 20250408
  Serious: Yes (Hospitalization, Other)
  Sender: HLS THERAPEUTICS
  Company Number: US-HLS-202500018

PATIENT
  Age: 48 Year
  Sex: Female

DRUGS (9)
  1. CLOZAPINE [Suspect]
     Active Substance: CLOZAPINE
     Indication: Schizophrenia
     Route: 065
  2. CLOZAPINE [Suspect]
     Active Substance: CLOZAPINE
     Indication: Schizophrenia
     Route: 065
  3. PALIPERIDONE PALMITATE [Concomitant]
     Active Substance: PALIPERIDONE PALMITATE
     Route: 065
  4. OLANZAPINE [Concomitant]
     Active Substance: OLANZAPINE
     Route: 065
  5. BIPERIDEN [Concomitant]
     Active Substance: BIPERIDEN
     Route: 065
  6. AMISULPRIDE [Concomitant]
     Active Substance: AMISULPRIDE
     Route: 065
  7. LORAZEPAM [Concomitant]
     Active Substance: LORAZEPAM
     Route: 065
  8. FLUOXETINE [Concomitant]
     Active Substance: FLUOXETINE HYDROCHLORIDE
     Route: 065
  9. CIPROFLOXACIN [Concomitant]
     Active Substance: CIPROFLOXACIN
     Route: 065

REACTIONS (15)
  - Aggression [Recovered/Resolved]
  - Agitation [Recovered/Resolved]
  - Suicidal behaviour [Recovered/Resolved]
  - Grimacing [Recovered/Resolved]
  - Insomnia [Recovered/Resolved]
  - Mutism [Recovered/Resolved]
  - Negativism [Recovered/Resolved]
  - Obsessive thoughts [Recovered/Resolved]
  - Paranoia [Recovered/Resolved]
  - Posturing [Recovered/Resolved]
  - Catatonia [Recovered/Resolved]
  - Food refusal [Recovered/Resolved]
  - Soliloquy [Recovered/Resolved]
  - Treatment noncompliance [Recovered/Resolved]
  - Urinary tract infection [Recovered/Resolved]
